FAERS Safety Report 23333354 (Version 1)
Quarter: 2023Q4

REPORT INFORMATION
  Report Type: Spontaneous
  Country: US (occurrence: US)
  Receive Date: 20231222
  Receipt Date: 20231222
  Transmission Date: 20240110
  Serious: No
  Sender: FDA-Public Use
  Company Number: US-CTI BIOPHARMA-2023US04177

PATIENT

DRUGS (15)
  1. VONJO [Suspect]
     Active Substance: PACRITINIB
     Indication: Myelofibrosis
     Dosage: 200 MG, BID
     Route: 048
     Dates: start: 20230201
  2. AFRIN [Concomitant]
     Active Substance: OXYMETAZOLINE
  3. AMLODIPINE [Concomitant]
     Active Substance: AMLODIPINE BESYLATE
  4. BENAZEPRIL [Concomitant]
     Active Substance: BENAZEPRIL HYDROCHLORIDE
  5. METOPROLOL [Concomitant]
     Active Substance: METOPROLOL
  6. NIFEDIPINE [Concomitant]
     Active Substance: NIFEDIPINE
  7. NITROFURANTOIN [Concomitant]
     Active Substance: NITROFURANTOIN
  8. PAROXETINE [Concomitant]
     Active Substance: PAROXETINE
  9. PREDNISONE [Concomitant]
     Active Substance: PREDNISONE
  10. PROCHLORPERAZINE [Concomitant]
     Active Substance: PROCHLORPERAZINE
  11. ROSUVASTATIN [Concomitant]
     Active Substance: ROSUVASTATIN
  12. SULFAMETHOXAZOLE [Concomitant]
     Active Substance: SULFAMETHOXAZOLE
  13. CRANBERRY [Concomitant]
     Active Substance: CRANBERRY
  14. THALOMID [Concomitant]
     Active Substance: THALIDOMIDE
  15. TRAZODONE [Concomitant]
     Active Substance: TRAZODONE HYDROCHLORIDE

REACTIONS (1)
  - Disease progression [Unknown]
